FAERS Safety Report 6320592-5 (Version None)
Quarter: 2009Q3

REPORT INFORMATION
  Report Type: 
  Country: None (occurrence: None)
  Receive Date: 20090822
  Receipt Date: 20081125
  Transmission Date: 20100115
  Serious: No
  Sender: FDA-Public Use
  Company Number: US-ABBOTT-08P-163-0489196-00

PATIENT
  Sex: Female

DRUGS (3)
  1. NIASPAN [Suspect]
     Indication: BLOOD CHOLESTEROL INCREASED
     Dosage: 500/20 MG QD AT BEDTIME
     Route: 048
     Dates: start: 20081101
  2. NIASPAN [Suspect]
     Indication: DIABETES MELLITUS
  3. UNNAMED DIABETES MEDICATION [Concomitant]
     Indication: DIABETES MELLITUS

REACTIONS (4)
  - FLUSHING [None]
  - OROPHARYNGEAL PAIN [None]
  - PRURITUS [None]
  - RASH [None]
